FAERS Safety Report 8607108 (Version 2)
Quarter: 2013Q3

REPORT INFORMATION
  Report Type: Spontaneous
  Country: US (occurrence: US)
  Receive Date: 20120611
  Receipt Date: 20130723
  Transmission Date: 20140515
  Serious: Yes (Disabling)
  Sender: FDA-Public Use
  Company Number: US-ASTRAZENECA-2012SE34765

PATIENT
  Age: 56 Year
  Sex: Female
  Weight: 108.9 kg

DRUGS (15)
  1. NEXIUM [Suspect]
     Indication: GASTROOESOPHAGEAL REFLUX DISEASE
     Dosage: 2 TIMES PER DAY
     Route: 048
     Dates: start: 1999, end: 2012
  2. PRILOSEC [Suspect]
     Indication: GASTROOESOPHAGEAL REFLUX DISEASE
     Dosage: 2 TIMES PER DAY
     Route: 048
     Dates: start: 1990
  3. PREVACID [Suspect]
     Indication: GASTROOESOPHAGEAL REFLUX DISEASE
     Dosage: 2 TIMES PER DAY
     Route: 065
     Dates: start: 1990
  4. ZEGERID [Concomitant]
     Dosage: 2 TIMES PER DAY
     Dates: start: 2006, end: 2012
  5. ZANTAC [Concomitant]
     Dosage: 2 TIMES PER DAY
     Dates: start: 1999, end: 201304
  6. TUMS [Concomitant]
     Dosage: AS NEEDED
     Dates: start: 1999
  7. ROLAIDS [Concomitant]
     Dosage: AS NEEDED
     Dates: start: 1999
  8. MYLANTA [Concomitant]
     Dosage: AS NEEDED
     Dates: start: 1999
  9. LIPITOR [Concomitant]
     Indication: BLOOD CHOLESTEROL ABNORMAL
  10. TRAMADOL HCL/ULTRAM [Concomitant]
     Indication: PAIN
  11. RORAXIN [Concomitant]
     Indication: PAIN
  12. ENALAPRIL  VASOTEC [Concomitant]
     Indication: HYPERTENSION
  13. AMLODIPINE  NORZASC [Concomitant]
     Indication: BLOOD PRESSURE ABNORMAL
  14. LASIX  FUROSEIDE [Concomitant]
     Indication: BLOOD PRESSURE ABNORMAL
  15. ZARAFAT  SUCRALFATE [Concomitant]
     Indication: GASTRIC DISORDER

REACTIONS (12)
  - Back injury [Unknown]
  - Osteoporosis [Unknown]
  - Bone density decreased [Unknown]
  - Muscular weakness [Unknown]
  - Multiple fractures [Unknown]
  - Lower limb fracture [Unknown]
  - Arthritis [Unknown]
  - Calcium deficiency [Unknown]
  - Vitamin D deficiency [Unknown]
  - Tinnitus [Unknown]
  - Dizziness [Unknown]
  - Arthropathy [Unknown]
